FAERS Safety Report 9485341 (Version 1)
Quarter: 2013Q3

REPORT INFORMATION
  Report Type: Spontaneous
  Country: GB (occurrence: GB)
  Receive Date: 20130828
  Receipt Date: 20130828
  Transmission Date: 20140515
  Serious: Yes (Hospitalization, Other)
  Sender: FDA-Public Use
  Company Number: GB-ABBOTT-13P-167-1138444-00

PATIENT
  Age: 67 Year
  Sex: Male

DRUGS (2)
  1. PROSTAP 3 [Suspect]
     Indication: PROSTATE CANCER
     Route: 030
     Dates: start: 20130725
  2. ZOLADEX [Concomitant]
     Indication: PROSTATE CANCER

REACTIONS (1)
  - Immune thrombocytopenic purpura [Not Recovered/Not Resolved]
